FAERS Safety Report 7409573-8 (Version None)
Quarter: 2011Q2

REPORT INFORMATION
  Report Type: 
  Country: None (occurrence: None)
  Receive Date: 20110412
  Receipt Date: 20110329
  Transmission Date: 20111010
  Serious: Yes (Hospitalization)
  Sender: FDA-Public Use
  Company Number: CA-JNJFOC-20110312649

PATIENT
  Sex: Female
  Weight: 76.6 kg

DRUGS (11)
  1. PREDNISONE [Concomitant]
  2. CLOPIDOGREL [Concomitant]
  3. NORVASC [Concomitant]
  4. AMLODIPINE [Concomitant]
  5. CALCIUM [Concomitant]
  6. POTASSIUM [Concomitant]
  7. REMICADE [Suspect]
     Indication: TAKAYASU'S ARTERITIS
     Route: 042
  8. ASPIRIN [Concomitant]
  9. APO-HYDROXYQUINE [Concomitant]
  10. IRON [Concomitant]
  11. VITAMIN TAB [Concomitant]

REACTIONS (5)
  - VOMITING [None]
  - DIARRHOEA [None]
  - RENAL ARTERY STENT PLACEMENT [None]
  - NAUSEA [None]
  - BLOOD POTASSIUM DECREASED [None]
